FAERS Safety Report 9196953 (Version 2)
Quarter: 2013Q4

REPORT INFORMATION
  Report Type: Spontaneous
  Country: US (occurrence: US)
  Receive Date: 20130328
  Receipt Date: 20131202
  Transmission Date: 20140711
  Serious: Yes (Hospitalization, Other)
  Sender: FDA-Public Use
  Company Number: US-BAYER-2013-038452

PATIENT
  Age: 26 Year
  Sex: Female

DRUGS (13)
  1. YASMIN [Suspect]
  2. YAZ [Suspect]
  3. OCELLA [Suspect]
  4. HYDROXYZINE [Concomitant]
     Dosage: 25 MG, UNK
  5. PREDNISONE [Concomitant]
     Dosage: 10 MG, UNK
  6. PROPOXACET-N [Concomitant]
     Dosage: 100/650MG
  7. ZYRTEC [Concomitant]
     Dosage: 10 MG, UNK
  8. METHYLPREDNISOLONE [Concomitant]
     Dosage: 4 MG, UNK
  9. PROMETHAZINE [Concomitant]
     Dosage: 25 MG, UNK
  10. VALTREX [Concomitant]
     Dosage: 500 MG, UNK
  11. LORTAB [Concomitant]
  12. LEVAQUIN [Concomitant]
  13. PHENERGAN [Concomitant]

REACTIONS (5)
  - Gallbladder injury [None]
  - Cholecystitis acute [None]
  - Injury [None]
  - Pain [None]
  - Pain [None]
